FAERS Safety Report 5059029-5 (Version None)
Quarter: 2006Q3

REPORT INFORMATION
  Report Type: 
  Country: None (occurrence: None)
  Receive Date: 20060719
  Receipt Date: 20060706
  Transmission Date: 20061208
  Serious: Yes (Other)
  Sender: FDA-Public Use
  Company Number: HQWYE682510JUL06

PATIENT
  Age: 66 Year
  Sex: Female
  Weight: 53.57 kg

DRUGS (5)
  1. PREMARIN [Suspect]
     Indication: ENDOMETRIOSIS
     Dosage: 1.25 MG DAILY ORAL ; 0.45 MG ORAL ; 0.9 MG ORAL
     Route: 048
     Dates: start: 19660101, end: 20030101
  2. PREMARIN [Suspect]
     Indication: ENDOMETRIOSIS
     Dosage: 1.25 MG DAILY ORAL ; 0.45 MG ORAL ; 0.9 MG ORAL
     Route: 048
     Dates: start: 20030101, end: 20050101
  3. PREMARIN [Suspect]
     Indication: ENDOMETRIOSIS
     Dosage: 1.25 MG DAILY ORAL ; 0.45 MG ORAL ; 0.9 MG ORAL
     Route: 048
     Dates: start: 20050101
  4. LISINOPRIL [Concomitant]
  5. COREG [Concomitant]

REACTIONS (5)
  - ARTHROPOD BITE [None]
  - BONE DENSITY DECREASED [None]
  - CARDIAC DISORDER [None]
  - MYOPATHY [None]
  - SLEEP DISORDER [None]
